FAERS Safety Report 19904199 (Version 1)
Quarter: 2021Q3

REPORT INFORMATION
  Report Type: Spontaneous
  Country: US (occurrence: US)
  Receive Date: 20210930
  Receipt Date: 20210930
  Transmission Date: 20211014
  Serious: Yes (Hospitalization)
  Sender: FDA-Public Use
  Company Number: US-SAOL THERAPEUTICS-2021SAO00323

PATIENT
  Age: 15 Year
  Sex: Female

DRUGS (3)
  1. BACLOFEN. [Suspect]
     Active Substance: BACLOFEN
     Dosage: UNK
     Route: 048
     Dates: end: 20210915
  2. LIORESAL [Suspect]
     Active Substance: BACLOFEN
     Dosage: 56 ?G, \DAY
     Route: 037
     Dates: end: 20210915
  3. LIORESAL [Suspect]
     Active Substance: BACLOFEN
     Dosage: 25 ?G, \DAY
     Route: 037
     Dates: start: 20210915

REACTIONS (4)
  - Mydriasis [Not Recovered/Not Resolved]
  - Overdose [Recovering/Resolving]
  - Unresponsive to stimuli [Not Recovered/Not Resolved]
  - Bradycardia [Not Recovered/Not Resolved]

NARRATIVE: CASE EVENT DATE: 20210915
